FAERS Safety Report 9202182 (Version 2)
Quarter: 2013Q2

REPORT INFORMATION
  Report Type: Spontaneous
  Country: US (occurrence: None)
  Receive Date: 20130326
  Receipt Date: 20130415
  Transmission Date: 20140414
  Serious: Yes (Other)
  Sender: FDA-Public Use
  Company Number: AUR-APL-2013-02565

PATIENT
  Age: 76 Year
  Sex: Female
  Weight: 74.83 kg

DRUGS (3)
  1. SIMVASTATIN [Suspect]
     Indication: NEUROPATHY PERIPHERAL
  2. ARTHROTEC [Suspect]
     Indication: ARTHRITIS
     Dosage: 200/75 MG, 2X/DAY, ORAL
     Route: 048
  3. HYDROCHLOROTHIAZIDE (HYDROCHLOROTHIAZIDE) [Concomitant]

REACTIONS (3)
  - Ankle fracture [None]
  - Off label use [None]
  - Knee arthroplasty [None]
